FAERS Safety Report 18965097 (Version 1)
Quarter: 2021Q1

REPORT INFORMATION
  Report Type: Spontaneous
  Country: CA (occurrence: CA)
  Receive Date: 20210303
  Receipt Date: 20210303
  Transmission Date: 20210420
  Serious: Yes (Other)
  Sender: FDA-Public Use
  Company Number: CA-PFIZER INC-2021206440

PATIENT
  Age: 54 Year
  Sex: Female
  Weight: 58 kg

DRUGS (9)
  1. ACETAMINOPHEN;OXYCODONE HYDROCHLORIDE [Concomitant]
     Active Substance: ACETAMINOPHEN\OXYCODONE HYDROCHLORIDE
  2. METHOTREXATE SODIUM. [Suspect]
     Active Substance: METHOTREXATE SODIUM
     Dosage: 25 MG, WEEKLY
     Route: 048
  3. RABEPRAZOLE [Concomitant]
     Active Substance: RABEPRAZOLE
  4. RISEDRONATE [Concomitant]
     Active Substance: RISEDRONATE SODIUM
     Dosage: 35 MG, WEEKLY
  5. ONDANSETRON [Concomitant]
     Active Substance: ONDANSETRON
     Dosage: 5 MG, WEEKLY
  6. OXYNEO [Concomitant]
     Active Substance: OXYCODONE
     Dosage: UNK, 3X/DAY
  7. FOLIC ACID. [Concomitant]
     Active Substance: FOLIC ACID
     Dosage: 5 MG, 1X/DAY
  8. HUMIRA [Suspect]
     Active Substance: ADALIMUMAB
     Indication: RHEUMATOID ARTHRITIS
     Route: 058
  9. RAMIPRIL. [Concomitant]
     Active Substance: RAMIPRIL
     Indication: ROSACEA
     Dosage: 10 MG

REACTIONS (3)
  - Drug ineffective [Unknown]
  - Osteoporosis [Unknown]
  - Colitis microscopic [Unknown]
